FAERS Safety Report 12619609 (Version 1)
Quarter: 2016Q3

REPORT INFORMATION
  Report Type: Report from Study
  Country: US (occurrence: US)
  Receive Date: 20160803
  Receipt Date: 20160803
  Transmission Date: 20161109
  Serious: Yes (Hospitalization, Other)
  Sender: FDA-Public Use
  Company Number: US-JNJFOC-20160723102

PATIENT
  Sex: Male

DRUGS (19)
  1. ASACOL [Concomitant]
     Active Substance: MESALAMINE
     Dosage: 2 TEBC (TABLET ENTERIC COATED)
     Route: 048
  2. LEXAPRO [Concomitant]
     Active Substance: ESCITALOPRAM OXALATE
     Route: 065
  3. REMICADE [Suspect]
     Active Substance: INFLIXIMAB
     Indication: COLITIS ULCERATIVE
     Dosage: 520 MG DISSOLVED IN 250 ML OF NORMAL SALINE INFUSE OVER 2 TO 3 HOURS
     Route: 042
     Dates: start: 20151209
  4. REMICADE [Suspect]
     Active Substance: INFLIXIMAB
     Indication: COLITIS ULCERATIVE
     Dosage: 520 MG DISSOLVED IN 250 ML OF NORMAL SALINE INFUSE OVER 2 TO 3 HOURS
     Route: 042
     Dates: start: 20160203
  5. REMICADE [Suspect]
     Active Substance: INFLIXIMAB
     Indication: COLITIS ULCERATIVE
     Dosage: 520 MG DISSOLVED IN 250 ML OF NORMAL SALINE INFUSE OVER 2 TO 3 HOURS
     Route: 042
     Dates: start: 20160531
  6. FISH OIL [Concomitant]
     Active Substance: FISH OIL
     Dosage: POSSIBLY
     Route: 065
  7. INSULIN ASPART [Concomitant]
     Active Substance: INSULIN ASPART
     Dosage: DOSE 100 UNITS PER ML USE AS DIRECTED QAC
     Route: 065
  8. KLONOPIN [Concomitant]
     Active Substance: CLONAZEPAM
     Route: 065
  9. TRAZODONE HYDROCHLORIDE. [Concomitant]
     Active Substance: TRAZODONE HYDROCHLORIDE
     Route: 065
  10. INSULIN [Concomitant]
     Active Substance: INSULIN NOS
     Dosage: PEN NEEDLES 5/16 31G X 8 MM MISC (INSULIN PEN NEEDLE) USE AS DIRECTED.
     Route: 065
  11. REMICADE [Suspect]
     Active Substance: INFLIXIMAB
     Indication: COLITIS ULCERATIVE
     Dosage: 520 MG DISSOLVED IN 250 ML OF NORMAL SALINE INFUSE OVER 2 TO 3 HOURS
     Route: 042
  12. FOLIC ACID. [Concomitant]
     Active Substance: FOLIC ACID
     Route: 065
  13. HUMIRA [Concomitant]
     Active Substance: ADALIMUMAB
     Dosage: PEN STARTER 40 MG/0.8 ML KIT AS DIRECTED
     Route: 065
  14. REMICADE [Suspect]
     Active Substance: INFLIXIMAB
     Indication: COLITIS ULCERATIVE
     Dosage: 520 MG DISSOLVED IN 250 ML OF NORMAL SALINE INFUSE OVER 2 TO 3 HOURS
     Route: 042
     Dates: start: 20160330
  15. LANTUS [Concomitant]
     Active Substance: INSULIN GLARGINE
     Dosage: ALSO REPORED AS 100 UNITS PER ML
     Route: 058
  16. LIPITOR [Concomitant]
     Active Substance: ATORVASTATIN CALCIUM
     Route: 048
  17. LASIX [Concomitant]
     Active Substance: FUROSEMIDE
     Dosage: 1 TAB PO BID
     Route: 048
  18. REMICADE [Suspect]
     Active Substance: INFLIXIMAB
     Indication: COLITIS ULCERATIVE
     Dosage: 520 MG DISSOLVED IN 250 ML OF NORMAL SALINE INFUSE OVER 2 TO 3 HOURS
     Route: 042
     Dates: start: 20150819
  19. INSULIN [Concomitant]
     Active Substance: INSULIN NOS
     Dosage: 30G X 5/16 0.5 ML MISC (INSULIN SYRINGE-NEEDLE U-100) USE AS DIRECTED
     Route: 065

REACTIONS (7)
  - Pharyngeal disorder [Unknown]
  - Hospitalisation [Unknown]
  - Cardiac rehabilitation therapy [Unknown]
  - Infection [Unknown]
  - Nausea [Not Recovered/Not Resolved]
  - Frequent bowel movements [Unknown]
  - Constipation [Recovered/Resolved]

NARRATIVE: CASE EVENT DATE: 2016
